FAERS Safety Report 7256049-7 (Version None)
Quarter: 2011Q1

REPORT INFORMATION
  Report Type: 
  Country: None (occurrence: None)
  Receive Date: 20110129
  Receipt Date: 20100507
  Transmission Date: 20110831
  Serious: No
  Sender: FDA-Public Use
  Company Number: US-ABBOTT-10P-163-0643636-00

PATIENT
  Sex: Male

DRUGS (2)
  1. HUMIRA [Suspect]
     Indication: CROHN'S DISEASE
     Dosage: 160MG
     Dates: start: 20100401, end: 20100507
  2. ASACOL [Concomitant]
     Indication: CROHN'S DISEASE

REACTIONS (3)
  - WEIGHT INCREASED [None]
  - FLUID RETENTION [None]
  - OEDEMA PERIPHERAL [None]
